FAERS Safety Report 18294399 (Version 1)
Quarter: 2020Q3

REPORT INFORMATION
  Report Type: Spontaneous
  Country: CA (occurrence: CA)
  Receive Date: 20200922
  Receipt Date: 20200922
  Transmission Date: 20201103
  Serious: No
  Sender: FDA-Public Use
  Company Number: None

PATIENT
  Age: 23 Year
  Sex: Female
  Weight: 65 kg

DRUGS (2)
  1. KYLEENA [Suspect]
     Active Substance: LEVONORGESTREL
     Indication: CONTRACEPTION
     Dates: start: 20181119, end: 20200908
  2. NUVARING [Suspect]
     Active Substance: ETHINYL ESTRADIOL\ETONOGESTREL
     Indication: CONTRACEPTION
     Dosage: ?          QUANTITY:1 RING;OTHER FREQUENCY:Q3WEEKS;?
     Route: 067
     Dates: start: 20200908, end: 20200916

REACTIONS (7)
  - Vulvovaginal injury [None]
  - Insomnia [None]
  - Nausea [None]
  - Headache [None]
  - Blood oestrogen decreased [None]
  - Pelvic pain [None]
  - Diarrhoea [None]

NARRATIVE: CASE EVENT DATE: 20200915
